FAERS Safety Report 12404614 (Version 1)
Quarter: 2016Q2

REPORT INFORMATION
  Report Type: Spontaneous
  Country: GB (occurrence: GB)
  Receive Date: 20160525
  Receipt Date: 20160525
  Transmission Date: 20160815
  Serious: Yes (Other)
  Sender: FDA-Public Use
  Company Number: GB-WATSON-2016-10492

PATIENT
  Age: 84 Year
  Sex: Female

DRUGS (1)
  1. CHLORPHENIRAMINE (UNKNOWN) [Suspect]
     Active Substance: CHLORPHENIRAMINE
     Indication: SEASONAL ALLERGY
     Dosage: 4 MG, UNKNOWN
     Route: 048

REACTIONS (1)
  - Sneezing [Not Recovered/Not Resolved]
